FAERS Safety Report 25242155 (Version 1)
Quarter: 2025Q2

REPORT INFORMATION
  Report Type: Spontaneous
  Country: US (occurrence: US)
  Receive Date: 20250426
  Receipt Date: 20250426
  Transmission Date: 20250717
  Serious: Yes (Hospitalization)
  Sender: AMGEN
  Company Number: US-AMGEN-USASP2025079880

PATIENT
  Age: 25 Year
  Sex: Female

DRUGS (5)
  1. PREDNISONE [Suspect]
     Active Substance: PREDNISONE
     Indication: Encephalitis
     Route: 065
  2. RITUXIMAB [Suspect]
     Active Substance: RITUXIMAB
     Indication: Encephalitis
     Route: 065
  3. QUETIAPINE [Concomitant]
     Active Substance: QUETIAPINE
  4. HUMAN IMMUNOGLOBULIN G [Concomitant]
     Active Substance: HUMAN IMMUNOGLOBULIN G
     Route: 040
  5. METHYLPREDNISOLONE [Concomitant]
     Active Substance: METHYLPREDNISOLONE

REACTIONS (5)
  - Hyperemesis gravidarum [Unknown]
  - Encephalitis [Unknown]
  - Anxiety [Unknown]
  - Maternal exposure during pregnancy [Unknown]
  - Off label use [Unknown]
